FAERS Safety Report 14242587 (Version 2)
Quarter: 2017Q4

REPORT INFORMATION
  Report Type: Spontaneous
  Country: US (occurrence: US)
  Receive Date: 20171201
  Receipt Date: 20171206
  Transmission Date: 20180321
  Serious: No
  Sender: FDA-Public Use
  Company Number: US-BAYER-2017-232293

PATIENT
  Sex: Female
  Weight: 67.98 kg

DRUGS (12)
  1. GABAPENTIN. [Concomitant]
     Active Substance: GABAPENTIN
  2. TRAZODONE HYDROCHLORIDE. [Concomitant]
     Active Substance: TRAZODONE HYDROCHLORIDE
     Dosage: UNK
  3. VITAMIN A AND D [Concomitant]
     Active Substance: LANOLIN\PETROLATUM
     Dosage: UNK
  4. MIRALAX [Suspect]
     Active Substance: POLYETHYLENE GLYCOL 3350
     Dosage: 1 DF, QD
     Route: 048
  5. HYDRACORT [Concomitant]
     Dosage: 25 MG, QD
  6. CLONAZEPAM W/VALPROATE SEMISODIUM [Concomitant]
     Dosage: 1 MG, QD
  7. DILT-XR [Concomitant]
     Active Substance: DILTIAZEM
  8. LISINOPRIL. [Concomitant]
     Active Substance: LISINOPRIL
     Dosage: UNK
  9. ALLEGRA [Concomitant]
     Active Substance: FEXOFENADINE HYDROCHLORIDE
     Dosage: UNK
  10. BUPROPION SR [Concomitant]
     Active Substance: BUPROPION HYDROCHLORIDE
     Dosage: UNK
  11. BACLOFEN. [Concomitant]
     Active Substance: BACLOFEN
     Dosage: 10 MG, BID
  12. OXYBUTYNIN AL [Concomitant]
     Dosage: UNK

REACTIONS (3)
  - Underdose [Unknown]
  - Poor quality drug administered [Unknown]
  - Product contamination physical [Unknown]
